FAERS Safety Report 10981992 (Version 2)
Quarter: 2016Q1

REPORT INFORMATION
  Report Type: Spontaneous
  Country: US (occurrence: US)
  Receive Date: 20150403
  Receipt Date: 20160111
  Transmission Date: 20160525
  Serious: No
  Sender: FDA-Public Use
  Company Number: US-ASTRAZENECA-2014SE78362

PATIENT
  Age: 28983 Day
  Sex: Female
  Weight: 59 kg

DRUGS (1)
  1. ONGLYZA [Suspect]
     Active Substance: SAXAGLIPTIN HYDROCHLORIDE
     Indication: TYPE 2 DIABETES MELLITUS
     Dosage: 5 MG, EVERY MORNING  SHIFED TO NIGHT (EVERYDAY)
     Route: 048
     Dates: start: 20100323

REACTIONS (11)
  - Weight decreased [Unknown]
  - Sleep disorder [Unknown]
  - Crying [Not Recovered/Not Resolved]
  - Somnolence [Unknown]
  - Asthenia [Unknown]
  - Drug ineffective [Unknown]
  - Hyperglycaemia [Not Recovered/Not Resolved]
  - Nausea [Unknown]
  - Glycosylated haemoglobin decreased [Unknown]
  - Cardiac disorder [Unknown]
  - Dizziness [Unknown]

NARRATIVE: CASE EVENT DATE: 20140911
